FAERS Safety Report 7639600-4 (Version None)
Quarter: 2011Q3

REPORT INFORMATION
  Report Type: 
  Country: None (occurrence: None)
  Receive Date: 20110721
  Receipt Date: 20110708
  Transmission Date: 20111222
  Serious: Yes (Hospitalization)
  Sender: FDA-Public Use
  Company Number: IDA-00562

PATIENT
  Age: 64 Year
  Sex: Female

DRUGS (1)
  1. INDERAL [Suspect]
     Route: 048
     Dates: start: 20110309

REACTIONS (1)
  - OBSTRUCTIVE AIRWAYS DISORDER [None]
